FAERS Safety Report 8809185 (Version 1)
Quarter: 2012Q4

REPORT INFORMATION
  Report Type: 
  Country: GB (occurrence: GB)
  Receive Date: 20120926
  Receipt Date: 20120926
  Transmission Date: 20130627
  Serious: Yes (Other)
  Sender: FDA-Public Use
  Company Number: PHHY2012GB082079

PATIENT
  Age: 50 Year
  Sex: Female
  Weight: 95.25 kg

DRUGS (3)
  1. SERTRALINE [Suspect]
     Indication: ANXIETY
     Dosage: 50 mg, UNK
     Route: 048
     Dates: start: 20120807, end: 20120813
  2. SERTRALINE [Suspect]
     Indication: PANIC ATTACK
  3. METFORMIN [Concomitant]

REACTIONS (5)
  - Disorientation [Unknown]
  - Anxiety [Recovered/Resolved with Sequelae]
  - Visual impairment [Unknown]
  - Dizziness [Unknown]
  - Drug prescribing error [Unknown]
